FAERS Safety Report 4719638-7 (Version None)
Quarter: 2005Q3

REPORT INFORMATION
  Report Type: 
  Country: None (occurrence: None)
  Receive Date: 20050721
  Receipt Date: 20040430
  Transmission Date: 20060218
  Serious: Yes (Other)
  Sender: FDA-Public Use
  Company Number: US-GLAXOSMITHKLINE-A0510153A

PATIENT
  Sex: Female

DRUGS (5)
  1. AVANDIA [Suspect]
     Dosage: 4MG TWICE PER DAY
     Route: 048
     Dates: start: 20020101, end: 20030101
  2. ZESTRIL [Concomitant]
     Route: 048
  3. HUMULIN 70/30 [Concomitant]
     Dosage: 20U IN THE MORNING
     Route: 058
  4. HUMULIN 70/30 [Concomitant]
     Dosage: 10U AT NIGHT
     Route: 058
  5. IBUPROFEN [Concomitant]
     Dosage: 800MG THREE TIMES PER DAY
     Route: 048

REACTIONS (1)
  - CARDIAC FAILURE CONGESTIVE [None]
